FAERS Safety Report 8017459-3 (Version None)
Quarter: 2012Q1

REPORT INFORMATION
  Report Type: 
  Country: None (occurrence: None)
  Receive Date: 20120103
  Receipt Date: 20111222
  Transmission Date: 20120608
  Serious: Yes (Hospitalization)
  Sender: FDA-Public Use
  Company Number: DE-AMGEN-DEUSP2011069412

PATIENT
  Age: 72 Year
  Sex: Male

DRUGS (8)
  1. PREDNISOLONE [Suspect]
     Dosage: 5 MG, UNK
     Route: 065
  2. ENBREL [Suspect]
     Dosage: UNK UNK, UNK
  3. RAMIPRIL [Suspect]
     Dosage: UNK
     Route: 065
  4. ALLOPURINOL [Suspect]
     Dosage: UNK
     Route: 065
  5. ARCOXIA [Suspect]
     Dosage: 1.0 DF, 1X/DAY
     Route: 065
  6. CALCIUM CARBONATE [Suspect]
     Indication: OSTEOPOROSIS
     Dosage: UNK
     Route: 065
  7. ENBREL [Suspect]
     Indication: RHEUMATOID ARTHRITIS
     Dosage: 25.0 MG, 2X/WEEK
     Route: 058
     Dates: start: 20080422, end: 20091201
  8. COLECALCIFEROL [Suspect]
     Indication: OSTEOPOROSIS
     Dosage: UNK
     Route: 065

REACTIONS (1)
  - STRESS [None]
